FAERS Safety Report 8573776-X (Version None)
Quarter: 2012Q3

REPORT INFORMATION
  Report Type: 
  Country: None (occurrence: None)
  Receive Date: 20120806
  Receipt Date: 20120730
  Transmission Date: 20120928
  Serious: Yes (Other)
  Sender: FDA-Public Use
  Company Number: JP-GLAXOSMITHKLINE-B0820066A

PATIENT
  Age: 70 Year
  Sex: Male

DRUGS (6)
  1. LAMICTAL [Suspect]
     Indication: BIPOLAR DISORDER
     Route: 048
  2. FLUNITRAZEPAM [Concomitant]
     Indication: BIPOLAR DISORDER
     Route: 065
  3. LAMICTAL [Suspect]
     Dosage: 100MG PER DAY
     Route: 048
  4. RISPERDAL [Concomitant]
     Indication: BIPOLAR DISORDER
     Route: 065
  5. VALPROATE SODIUM [Concomitant]
     Indication: BIPOLAR DISORDER
     Route: 048
  6. LITHIUM CARBONATE [Concomitant]
     Indication: BIPOLAR DISORDER
     Route: 048

REACTIONS (1)
  - PARKINSONISM [None]
